FAERS Safety Report 7047716-9 (Version None)
Quarter: 2010Q4

REPORT INFORMATION
  Report Type: 
  Country: None (occurrence: None)
  Receive Date: 20101015
  Receipt Date: 20101004
  Transmission Date: 20110411
  Serious: Yes (Hospitalization)
  Sender: FDA-Public Use
  Company Number: US-WYE-H17978010

PATIENT
  Sex: Female

DRUGS (2)
  1. TORISEL [Suspect]
     Indication: RENAL CELL CARCINOMA
     Dosage: DOSE NOT PROVIDED
     Route: 042
     Dates: start: 20090601, end: 20100901
  2. TORISEL [Suspect]
     Dosage: NOT PROVIDED
     Route: 042
     Dates: start: 20090526, end: 20090601

REACTIONS (1)
  - PLEURAL EFFUSION [None]
